FAERS Safety Report 16363306 (Version 1)
Quarter: 2019Q3

REPORT INFORMATION
  Report Type: Spontaneous
  Country: US (occurrence: US)
  Receive Date: 20190527
  Receipt Date: 20190527
  Transmission Date: 20191004
  Serious: Yes (Hospitalization)
  Sender: FDA-Public Use
  Company Number: None

PATIENT
  Age: 9 Year
  Sex: Male
  Weight: 35.4 kg

DRUGS (3)
  1. EPIDIOLEX [Suspect]
     Active Substance: CANNABIDIOL
     Indication: LENNOX-GASTAUT SYNDROME
  2. EPIDIOLEX [Concomitant]
     Active Substance: CANNABIDIOL
  3. ONFI [Concomitant]
     Active Substance: CLOBAZAM

REACTIONS (4)
  - Pneumonia streptococcal [None]
  - Rhinovirus infection [None]
  - Enterovirus infection [None]
  - Sepsis [None]

NARRATIVE: CASE EVENT DATE: 20190524
